FAERS Safety Report 10147857 (Version 2)
Quarter: 2014Q2

REPORT INFORMATION
  Report Type: Spontaneous
  Country: US (occurrence: US)
  Receive Date: 20140501
  Receipt Date: 20140529
  Transmission Date: 20141212
  Serious: Yes (Other)
  Sender: FDA-Public Use
  Company Number: US-KOWA-2014S1000498

PATIENT
  Sex: Male

DRUGS (2)
  1. LIVALO [Suspect]
     Route: 048
  2. LIALDA [Suspect]

REACTIONS (1)
  - Drug dispensing error [Recovered/Resolved]
